FAERS Safety Report 7653611-4 (Version None)
Quarter: 2011Q3

REPORT INFORMATION
  Report Type: 
  Country: None (occurrence: None)
  Receive Date: 20110803
  Receipt Date: 20110802
  Transmission Date: 20111222
  Serious: Yes (Death)
  Sender: FDA-Public Use
  Company Number: JP-BRISTOL-MYERS SQUIBB COMPANY-15922917

PATIENT
  Age: 68 Year
  Sex: Male

DRUGS (2)
  1. CARBOPLATIN [Suspect]
     Indication: LUNG NEOPLASM MALIGNANT
     Dosage: 500MG X1/MONTH, ON 06-JUL-2011 (ONCE)
     Route: 041
     Dates: start: 20110706
  2. TAXOL [Suspect]
     Indication: LUNG NEOPLASM MALIGNANT
     Dosage: RECEIVED 3 TIMES
     Route: 041
     Dates: start: 20110706, end: 20110721

REACTIONS (2)
  - VENTRICULAR EXTRASYSTOLES [None]
  - VENTRICULAR FIBRILLATION [None]
